FAERS Safety Report 12198877 (Version 4)
Quarter: 2016Q2

REPORT INFORMATION
  Report Type: Report from Study
  Country: US (occurrence: US)
  Receive Date: 20160322
  Receipt Date: 20160602
  Transmission Date: 20160815
  Serious: No
  Sender: FDA-Public Use
  Company Number: US-AMGEN-USASL2016034063

PATIENT
  Age: 30 Year
  Sex: Female

DRUGS (1)
  1. ENBREL [Suspect]
     Active Substance: ETANERCEPT
     Indication: ANKYLOSING SPONDYLITIS
     Dosage: 50 MG, QWK
     Route: 065
     Dates: start: 20160226

REACTIONS (17)
  - Fungal infection [Recovered/Resolved]
  - Back pain [Recovering/Resolving]
  - Device failure [Unknown]
  - Incorrect product storage [Unknown]
  - Facial pain [Unknown]
  - Feeling abnormal [Unknown]
  - Pain in extremity [Recovering/Resolving]
  - Impaired work ability [Unknown]
  - Pain [Unknown]
  - Fatigue [Unknown]
  - Aphonia [Unknown]
  - Photophobia [Unknown]
  - Burning sensation [Unknown]
  - Injection site pain [Unknown]
  - Pharyngeal oedema [Unknown]
  - Peripheral swelling [Recovered/Resolved]
  - Nasopharyngitis [Unknown]

NARRATIVE: CASE EVENT DATE: 2016
